FAERS Safety Report 9367657 (Version 3)
Quarter: 2014Q1

REPORT INFORMATION
  Report Type: Spontaneous
  Country: US (occurrence: US)
  Receive Date: 20130625
  Receipt Date: 20140110
  Transmission Date: 20141002
  Serious: Yes (Death, Hospitalization)
  Sender: FDA-Public Use
  Company Number: US-B.I. PHARMACEUTICALS,INC./RIDGEFIELD-2013-BI-17951BP

PATIENT
  Sex: Female
  Weight: 42.18 kg

DRUGS (7)
  1. PRADAXA [Suspect]
     Indication: ATRIAL FIBRILLATION
     Dates: start: 20110226, end: 20110614
  2. FUROSEMIDE [Concomitant]
     Dates: start: 20100206
  3. DILT-CD [Concomitant]
     Dates: start: 20090508
  4. SPIRONOLACTONE [Concomitant]
     Dates: start: 20100715
  5. METOPROLOL [Concomitant]
     Dates: start: 20071209
  6. HYDROXYZINE [Concomitant]
     Dates: start: 20110325
  7. LEVOTHYROXINE [Concomitant]

REACTIONS (2)
  - Gastrointestinal haemorrhage [Fatal]
  - Respiratory failure [Unknown]
